FAERS Safety Report 15145244 (Version 2)
Quarter: 2019Q1

REPORT INFORMATION
  Report Type: Spontaneous
  Country: US (occurrence: US)
  Receive Date: 20180713
  Receipt Date: 20190111
  Transmission Date: 20190417
  Serious: No
  Sender: FDA-Public Use
  Company Number: US-INTERCEPT-PMOCA2018000504

PATIENT

DRUGS (8)
  1. URSODIOL. [Concomitant]
     Active Substance: URSODIOL
  2. ADVIL [Concomitant]
     Active Substance: IBUPROFEN
  3. RANITIDINE. [Concomitant]
     Active Substance: RANITIDINE
  4. FLUTICASONE. [Concomitant]
     Active Substance: FLUTICASONE
  5. CALCIUM [Concomitant]
     Active Substance: CALCIUM
  6. OCALIVA [Suspect]
     Active Substance: OBETICHOLIC ACID
     Dosage: 5 MG, QD
     Route: 048
     Dates: start: 2018
  7. VITAMIN D3 [Concomitant]
     Active Substance: CHOLECALCIFEROL
  8. OCALIVA [Suspect]
     Active Substance: OBETICHOLIC ACID
     Indication: PRIMARY BILIARY CHOLANGITIS
     Dosage: 5 MG, QD
     Route: 048
     Dates: start: 20170829, end: 2018

REACTIONS (4)
  - Oedema peripheral [Unknown]
  - Product dose omission [Recovered/Resolved]
  - Influenza [Unknown]
  - Joint swelling [Unknown]

NARRATIVE: CASE EVENT DATE: 20181023
